FAERS Safety Report 12136086 (Version 2)
Quarter: 2016Q2

REPORT INFORMATION
  Report Type: Spontaneous
  Country: IT (occurrence: IT)
  Receive Date: 20160302
  Receipt Date: 20160502
  Transmission Date: 20160815
  Serious: Yes (Death)
  Sender: FDA-Public Use
  Company Number: IT-ACCORD-038272

PATIENT
  Age: 63 Year
  Sex: Female
  Weight: 93 kg

DRUGS (7)
  1. CYCLOPHOSPHAMIDE/CYCLOPHOSPHAMIDE MONOHYDRATE [Suspect]
     Active Substance: CYCLOPHOSPHAMIDE
     Indication: BREAST CANCER
     Route: 042
     Dates: start: 20160120, end: 20160120
  2. GRANISETRON KABI [Concomitant]
     Active Substance: GRANISETRON
     Dosage: 1MG/ML
     Route: 042
     Dates: start: 20160120, end: 20160120
  3. EPIRUBICIN ACCORD [Suspect]
     Active Substance: EPIRUBICIN HYDROCHLORIDE
     Indication: BREAST CANCER
     Dosage: 2 MG/ML
     Route: 042
     Dates: start: 20160120, end: 20160120
  4. ESOMEPRAZOLE/ESOMEPRAZOLE MAGNESIUM/ESOMEPRAZOLE SODIUM [Concomitant]
     Route: 048
  5. EMEND [Concomitant]
     Active Substance: APREPITANT
     Dosage: 125 MG + 80 MG
     Route: 048
     Dates: start: 20160120, end: 20160122
  6. FLUOROURACIL ACCORD [Suspect]
     Active Substance: FLUOROURACIL
     Indication: BREAST CANCER
     Dosage: 50 MG/ML
     Route: 042
     Dates: start: 20160120, end: 20160120
  7. DECADRON [Concomitant]
     Active Substance: DEXAMETHASONE
     Dosage: 4 MG/1 ML
     Route: 042
     Dates: start: 20160120, end: 20160120

REACTIONS (1)
  - Pulmonary embolism [Fatal]

NARRATIVE: CASE EVENT DATE: 20160203
